FAERS Safety Report 7814351-1 (Version None)
Quarter: 2011Q4

REPORT INFORMATION
  Report Type: 
  Country: None (occurrence: None)
  Receive Date: 20111011
  Receipt Date: 20111005
  Transmission Date: 20120403
  Serious: Yes (Hospitalization, Other)
  Sender: FDA-Public Use
  Company Number: 2010SP065562

PATIENT
  Age: 27 Year
  Sex: Female
  Weight: 74.8435 kg

DRUGS (2)
  1. IBUPROFEN (ADVIL) [Concomitant]
  2. NUVARING [Suspect]
     Indication: CONTRACEPTION
     Dates: start: 20080601, end: 20090114

REACTIONS (19)
  - ANXIETY [None]
  - ELECTROCARDIOGRAM CHANGE [None]
  - HYPOTHYROIDISM [None]
  - TRICUSPID VALVE INCOMPETENCE [None]
  - GESTATIONAL DIABETES [None]
  - THROMBOSIS [None]
  - MULTIPLE INJURIES [None]
  - BLOOD CHOLESTEROL INCREASED [None]
  - CARDIAC DISORDER [None]
  - PREGNANCY [None]
  - PULMONARY EMBOLISM [None]
  - PAIN [None]
  - EMOTIONAL DISORDER [None]
  - OVARIAN CYST [None]
  - HEADACHE [None]
  - DEPRESSION [None]
  - BACK PAIN [None]
  - MATERNAL EXPOSURE BEFORE PREGNANCY [None]
  - DYSPNOEA [None]
